FAERS Safety Report 9193700 (Version 1)
Quarter: 2013Q1

REPORT INFORMATION
  Report Type: Spontaneous
  Country: JP (occurrence: JP)
  Receive Date: 20130327
  Receipt Date: 20130327
  Transmission Date: 20140127
  Serious: Yes (Other)
  Sender: FDA-Public Use
  Company Number: JP-TEVA-393107ISR

PATIENT
  Age: 43 Year
  Sex: Male

DRUGS (3)
  1. PREDNISOLONE [Suspect]
     Indication: GLOMERULONEPHRITIS MINIMAL LESION
     Dosage: 50MG/DAY
     Route: 048
  2. PREDNISOLONE [Suspect]
     Indication: GLOMERULONEPHRITIS MINIMAL LESION
     Dosage: 40MG/DAY
     Route: 048
  3. METHYLPREDNISOLONE [Suspect]
     Indication: GLOMERULONEPHRITIS MINIMAL LESION
     Dosage: 500MG/DAY, PULSE THERAPY
     Route: 065

REACTIONS (2)
  - Pneumonia necrotising [Recovering/Resolving]
  - Bacillus infection [Recovering/Resolving]
